FAERS Safety Report 5127224-2 (Version None)
Quarter: 2006Q4

REPORT INFORMATION
  Report Type: 
  Country: None (occurrence: None)
  Receive Date: 20061010
  Receipt Date: 20060927
  Transmission Date: 20070319
  Serious: Yes (Hospitalization, Other)
  Sender: FDA-Public Use
  Company Number: 236329K06USA

PATIENT
  Age: 45 Year
  Sex: Female
  Weight: 99.8 kg

DRUGS (2)
  1. REBIF [Suspect]
     Indication: MULTIPLE SCLEROSIS
     Dosage: 44 MCG, 3 IN 1 WEEKS, NOT REPORTED
     Dates: start: 20030101, end: 20060912
  2. METHOTREXATE [Concomitant]

REACTIONS (10)
  - ANAEMIA [None]
  - DIABETES MELLITUS [None]
  - FAECALOMA [None]
  - FEELING ABNORMAL [None]
  - HEPATIC ENZYME INCREASED [None]
  - MULTIPLE SCLEROSIS RELAPSE [None]
  - PAIN IN EXTREMITY [None]
  - PNEUMONIA [None]
  - PULMONARY THROMBOSIS [None]
  - THROMBOPHLEBITIS SUPERFICIAL [None]
